FAERS Safety Report 9220731 (Version 5)
Quarter: 2014Q2

REPORT INFORMATION
  Report Type: Spontaneous
  Country: US (occurrence: US)
  Receive Date: 20130409
  Receipt Date: 20140605
  Transmission Date: 20141212
  Serious: No
  Sender: FDA-Public Use
  Company Number: US-PFIZER INC-2013111902

PATIENT
  Age: 45 Year
  Sex: Female
  Weight: 74.83 kg

DRUGS (20)
  1. LYRICA [Suspect]
     Indication: COMPLEX REGIONAL PAIN SYNDROME
     Dosage: 300 MG, 1X/DAY
     Route: 048
     Dates: start: 2002
  2. LYRICA [Suspect]
     Dosage: 150 MG, 2X/DAY
     Route: 048
  3. TOPAMAX [Concomitant]
     Dosage: 1000 MG, UNK
  4. TOPAMAX [Concomitant]
     Dosage: UNK
  5. CRESTOR [Concomitant]
     Dosage: UNK
  6. CRESTOR [Concomitant]
     Dosage: UNK
  7. DEXILANT [Concomitant]
     Dosage: UNK
  8. DEXILANT [Concomitant]
     Dosage: UNK
  9. NAMENDA [Concomitant]
     Dosage: UNK
  10. NAMENDA [Concomitant]
     Dosage: UNK
  11. PROZAC [Concomitant]
     Dosage: UNK
  12. PROZAC [Concomitant]
     Dosage: UNK
  13. SYNTHROID [Concomitant]
     Dosage: UNK
  14. SYNTHROID [Concomitant]
     Dosage: UNK
  15. VITAMIN B [Concomitant]
     Dosage: UNK
  16. VITAMIN B [Concomitant]
     Dosage: UNK
  17. VITAMIN C [Concomitant]
     Dosage: UNK
  18. VITAMIN C [Concomitant]
     Dosage: UNK
  19. VITAMIN D [Concomitant]
     Dosage: UNK
  20. ALLEGRA-D [Concomitant]
     Indication: HYPERSENSITIVITY
     Dosage: UNK

REACTIONS (1)
  - Toothache [Unknown]
